FAERS Safety Report 6527319-2 (Version None)
Quarter: 2010Q1

REPORT INFORMATION
  Report Type: 
  Country: None (occurrence: None)
  Receive Date: 20100105
  Receipt Date: 20091223
  Transmission Date: 20100710
  Serious: Yes (Hospitalization)
  Sender: FDA-Public Use
  Company Number: CA-ELI_LILLY_AND_COMPANY-CA200910005112

PATIENT
  Age: 50 Year
  Sex: Female

DRUGS (17)
  1. FORTEO [Suspect]
     Indication: OSTEOPOROSIS
     Dosage: 20 UG, DAILY (1/D)
     Route: 058
     Dates: start: 20080804
  2. RATIO-FENTANYL [Concomitant]
  3. PANTOLOC /01263201/ [Concomitant]
  4. CARBOCAL [Concomitant]
  5. PREMARIN [Concomitant]
  6. NOVO-MEDRONE [Concomitant]
  7. APO-BACLOFEN [Concomitant]
  8. DIOVAN [Concomitant]
  9. LYRICA [Concomitant]
  10. VITAMIN B1 TAB [Concomitant]
  11. PREDNISONE [Concomitant]
  12. CRESTOR [Concomitant]
  13. DILTIAZEM [Concomitant]
  14. EFFEXOR [Concomitant]
  15. STATEX [Concomitant]
  16. GRAVOL TAB [Concomitant]
     Dosage: UNK, AS NEEDED
  17. TYLENOL (CAPLET) [Concomitant]
     Dosage: UNK, AS NEEDED

REACTIONS (3)
  - FOOT FRACTURE [None]
  - MENISCUS LESION [None]
  - URINARY TRACT INFECTION [None]
